FAERS Safety Report 6369157-X (Version None)
Quarter: 2009Q3

REPORT INFORMATION
  Report Type: 
  Country: None (occurrence: None)
  Receive Date: 20090918
  Receipt Date: 20090918
  Transmission Date: 20100115
  Serious: Yes (Other)
  Sender: FDA-Public Use
  Company Number: None

PATIENT
  Age: 56 Year
  Sex: Female
  Weight: 90.9 kg

DRUGS (1)
  1. GABAPENTIN [Suspect]
     Indication: THORACIC OUTLET SYNDROME
     Dosage: 2 CAPS 1X DAY ORAL
     Route: 048
     Dates: start: 20061001

REACTIONS (3)
  - FATIGUE [None]
  - PRODUCT SUBSTITUTION ISSUE [None]
  - SOMNOLENCE [None]
